FAERS Safety Report 22628621 (Version 1)
Quarter: 2023Q2

REPORT INFORMATION
  Report Type: Spontaneous
  Country: US (occurrence: US)
  Receive Date: 20230622
  Receipt Date: 20230622
  Transmission Date: 20230722
  Serious: No
  Sender: FDA-Public Use
  Company Number: US-JNJFOC-20230643888

PATIENT
  Age: 76 Year
  Sex: Female

DRUGS (4)
  1. MACITENTAN [Suspect]
     Active Substance: MACITENTAN
     Indication: Product used for unknown indication
     Route: 048
  2. TYVASO [Suspect]
     Active Substance: TREPROSTINIL
     Indication: Pulmonary arterial hypertension
     Route: 055
     Dates: start: 20230518
  3. TYVASO [Suspect]
     Active Substance: TREPROSTINIL
     Route: 055
  4. ADEMPAS [Concomitant]
     Active Substance: RIOCIGUAT

REACTIONS (8)
  - Cough [Unknown]
  - Malaise [Unknown]
  - Oedema [Unknown]
  - Dizziness [Unknown]
  - Dyspnoea [Unknown]
  - Influenza [Recovering/Resolving]
  - Throat tightness [Unknown]
  - Product dose omission issue [Unknown]

NARRATIVE: CASE EVENT DATE: 20230101
